FAERS Safety Report 7951120-6 (Version None)
Quarter: 2011Q4

REPORT INFORMATION
  Report Type: 
  Country: None (occurrence: None)
  Receive Date: 20111201
  Receipt Date: 20111128
  Transmission Date: 20120403
  Serious: Yes (Hospitalization, Other)
  Sender: FDA-Public Use
  Company Number: US-BAYER-2011-085676

PATIENT
  Sex: Male

DRUGS (5)
  1. ANTIHYPERTENSIVES [Concomitant]
     Dosage: UNK
  2. OXYCODONE HCL [Concomitant]
     Dosage: UNK
  3. NEXAVAR [Suspect]
     Indication: RENAL CELL CARCINOMA
     Dosage: 400 MG, BID
     Route: 048
     Dates: start: 20110908, end: 20111110
  4. NEXAVAR [Suspect]
     Dosage: 200 MG, QD
     Route: 048
     Dates: start: 20111118, end: 20111101
  5. NEXAVAR [Suspect]
     Dosage: 200 MG, BID
     Route: 048
     Dates: start: 20111101

REACTIONS (13)
  - DYSPHONIA [None]
  - INFLAMMATION [None]
  - DIZZINESS [None]
  - PAIN [None]
  - ABDOMINAL PAIN [None]
  - BUNION [None]
  - MOBILITY DECREASED [None]
  - FATIGUE [None]
  - PAIN IN EXTREMITY [None]
  - DEPRESSION [None]
  - HYPERKERATOSIS [None]
  - SINUS CONGESTION [None]
  - INGUINAL HERNIA [None]
